FAERS Safety Report 5218347-8 (Version None)
Quarter: 2007Q1

REPORT INFORMATION
  Report Type: 
  Country: None (occurrence: None)
  Receive Date: 20070124
  Receipt Date: 20070112
  Transmission Date: 20070707
  Serious: Yes (Hospitalization, Other)
  Sender: FDA-Public Use
  Company Number: US-PFIZER INC-2007004179

PATIENT
  Sex: Male
  Weight: 62.6 kg

DRUGS (4)
  1. XALATAN [Suspect]
     Indication: MACULAR DEGENERATION
  2. AGGRENOX [Concomitant]
  3. PREVACID [Concomitant]
  4. ARICEPT [Concomitant]

REACTIONS (1)
  - CEREBROVASCULAR ACCIDENT [None]
